FAERS Safety Report 7119479-X (Version None)
Quarter: 2010Q4

REPORT INFORMATION
  Report Type: 
  Country: None (occurrence: None)
  Receive Date: 20101123
  Receipt Date: 20101115
  Transmission Date: 20110411
  Serious: Yes (Hospitalization, Other)
  Sender: FDA-Public Use
  Company Number: US-ABBOTT-10P-163-0685566-00

PATIENT
  Sex: Female

DRUGS (12)
  1. HUMIRA [Suspect]
     Indication: PSORIASIS
     Dates: start: 20070101, end: 20100201
  2. HUMIRA [Suspect]
     Indication: PSORIATIC ARTHROPATHY
     Dates: end: 20100913
  3. TACLONEX [Concomitant]
     Indication: PSORIASIS
     Route: 061
  4. TYLENOL (CAPLET) [Concomitant]
     Indication: PAIN
     Dosage: 1000 MG TWICE A DAY
  5. BENADRYL [Concomitant]
     Indication: PSORIASIS
  6. ASPIRIN [Concomitant]
     Indication: CARDIAC DISORDER
  7. PRILOSEC [Concomitant]
     Indication: GASTROOESOPHAGEAL REFLUX DISEASE
  8. COZAAR [Concomitant]
     Indication: HYPERTENSION
  9. PROPRANOLOL [Concomitant]
     Indication: HYPERTENSION
  10. STATIN [Concomitant]
     Indication: BLOOD CHOLESTEROL INCREASED
  11. HYDROCHLOROTHIAZIDE [Concomitant]
     Indication: HYPERTENSION
  12. ZOLOFT [Concomitant]
     Indication: ANXIETY

REACTIONS (9)
  - ABDOMINAL PAIN [None]
  - APHAGIA [None]
  - BREAST CANCER [None]
  - CLOSTRIDIAL INFECTION [None]
  - CONTUSION [None]
  - DEHYDRATION [None]
  - DIARRHOEA [None]
  - FALL [None]
  - SKIN LACERATION [None]
